FAERS Safety Report 20851158 (Version 2)
Quarter: 2022Q2

REPORT INFORMATION
  Report Type: Spontaneous
  Country: US (occurrence: US)
  Receive Date: 20220519
  Receipt Date: 20220601
  Transmission Date: 20220721
  Serious: Yes (Hospitalization)
  Sender: FDA-Public Use
  Company Number: US-TEVA-2022-US-2037147

PATIENT
  Age: 34 Year
  Sex: Female

DRUGS (16)
  1. LABETALOL [Suspect]
     Active Substance: LABETALOL\LABETALOL HYDROCHLORIDE
     Indication: Product used for unknown indication
     Dosage: 400 MILLIGRAM DAILY;
     Route: 065
  2. LABETALOL [Suspect]
     Active Substance: LABETALOL\LABETALOL HYDROCHLORIDE
     Dosage: 800 MILLIGRAM DAILY; DOSE INCREASED ON DAY 1 OF ADMISSION
     Route: 065
  3. INFLUENZA VIRUS VACCINE QUADRIVALENT TYPE A+B [Suspect]
     Active Substance: INFLUENZA VIRUS VACCINE QUADRIVALENT TYPE A+B
     Indication: Influenza immunisation
     Route: 065
  4. FOLIC ACID [Suspect]
     Active Substance: FOLIC ACID
     Indication: Vitamin supplementation
     Dosage: ONCE DAILY
     Route: 065
  5. HYDROXYPROGESTERONE [Suspect]
     Active Substance: HYDROXYPROGESTERONE
     Indication: Hormone therapy
     Dosage: DOSAGE: 250 MG/ML ONCE DAILY
     Route: 030
  6. MAGNESIUM [Suspect]
     Active Substance: MAGNESIUM
     Indication: Supplementation therapy
     Route: 042
  7. BETAMETHASONE [Suspect]
     Active Substance: BETAMETHASONE
     Indication: Product used for unknown indication
     Dosage: RECEIVED ON DAYS 1 AND 2 OF ADMISSION
     Route: 065
  8. NIFEDIPINE [Suspect]
     Active Substance: NIFEDIPINE
     Indication: Product used for unknown indication
     Dosage: STARTED ON DAY 22 OF ADMISSION
     Route: 065
  9. FERROUS SULFATE [Suspect]
     Active Substance: FERROUS SULFATE
     Indication: Supplementation therapy
     Dosage: 650 MILLIGRAM DAILY;
     Route: 065
  10. METHYLPREDNISOLONE [Suspect]
     Active Substance: METHYLPREDNISOLONE
     Indication: Stevens-Johnson syndrome
     Route: 042
  11. TRIAMCINOLONE [Suspect]
     Active Substance: TRIAMCINOLONE
     Indication: Stevens-Johnson syndrome
     Route: 061
  12. HYDROCORTISONE [Suspect]
     Active Substance: HYDROCORTISONE
     Indication: Stevens-Johnson syndrome
     Route: 065
  13. BETAMETHASONE DIPROPIONATE [Suspect]
     Active Substance: BETAMETHASONE DIPROPIONATE
     Indication: Stevens-Johnson syndrome
     Route: 061
  14. PREDNISONE [Suspect]
     Active Substance: PREDNISONE
     Indication: Stevens-Johnson syndrome
     Route: 065
  15. ETANERCEPT [Suspect]
     Active Substance: ETANERCEPT
     Indication: Stevens-Johnson syndrome
     Route: 058
  16. CLOBETASOL [Suspect]
     Active Substance: CLOBETASOL
     Indication: Stevens-Johnson syndrome
     Route: 061

REACTIONS (3)
  - Stevens-Johnson syndrome [Recovered/Resolved with Sequelae]
  - Maternal exposure during pregnancy [Unknown]
  - Live birth [Unknown]
